FAERS Safety Report 10160718 (Version 1)
Quarter: 2014Q2

REPORT INFORMATION
  Report Type: Spontaneous
  Country: IE (occurrence: IE)
  Receive Date: 20140508
  Receipt Date: 20140508
  Transmission Date: 20141212
  Serious: Yes (Hospitalization, Other)
  Sender: FDA-Public Use
  Company Number: US-ASTRAZENECA-2014SE30419

PATIENT
  Age: 1 Year
  Sex: Female

DRUGS (3)
  1. SYNAGIS [Suspect]
     Indication: CONGENITAL MULTIPLEX ARTHROGRYPOSIS
     Route: 030
     Dates: start: 20131119, end: 20131119
  2. SYNAGIS [Suspect]
     Indication: CONGENITAL MULTIPLEX ARTHROGRYPOSIS
     Route: 030
     Dates: start: 20140424
  3. ZANTAC [Concomitant]
     Indication: PRODUCT USED FOR UNKNOWN INDICATION

REACTIONS (3)
  - Lower respiratory tract infection [Recovering/Resolving]
  - Malaise [Recovering/Resolving]
  - Unevaluable event [Recovering/Resolving]
